FAERS Safety Report 19526758 (Version 1)
Quarter: 2021Q3

REPORT INFORMATION
  Report Type: Spontaneous
  Country: US (occurrence: US)
  Receive Date: 20210713
  Receipt Date: 20210713
  Transmission Date: 20211014
  Serious: Yes (Other)
  Sender: FDA-Public Use
  Company Number: US-ENDO PHARMACEUTICALS INC-2021-003242

PATIENT
  Age: 57 Year
  Sex: Female

DRUGS (4)
  1. RANITIDINE HYDROCHLORIDE. [Suspect]
     Active Substance: RANITIDINE HYDROCHLORIDE
     Indication: ARTHRITIS
     Dosage: 150 MG, DAILY
     Route: 065
     Dates: start: 200901, end: 202005
  2. ZANTAC [Suspect]
     Active Substance: RANITIDINE HYDROCHLORIDE
     Indication: ARTHRITIS
     Dosage: 150 MG, DAILY
     Route: 065
     Dates: start: 198301, end: 200901
  3. ZANTAC [Suspect]
     Active Substance: RANITIDINE HYDROCHLORIDE
     Indication: ARTHRITIS
     Dosage: 150 MG, DAILY
     Route: 065
     Dates: start: 198301, end: 200901
  4. RANITIDINE. [Suspect]
     Active Substance: RANITIDINE
     Indication: ARTHRITIS
     Dosage: 150 MG, DAILY
     Route: 065
     Dates: start: 200901, end: 202005

REACTIONS (3)
  - Bladder cancer [Recovering/Resolving]
  - Breast cancer stage III [Recovering/Resolving]
  - Lung neoplasm malignant [Unknown]

NARRATIVE: CASE EVENT DATE: 20000101
